FAERS Safety Report 7470991-3 (Version None)
Quarter: 2011Q2

REPORT INFORMATION
  Report Type: 
  Country: None (occurrence: None)
  Receive Date: 20110510
  Receipt Date: 20110506
  Transmission Date: 20111010
  Serious: No
  Sender: FDA-Public Use
  Company Number: US-PFIZER INC-2011098391

PATIENT
  Sex: Female
  Weight: 77.1 kg

DRUGS (3)
  1. ABILIFY [Concomitant]
     Dosage: UNK
  2. PRISTIQ [Suspect]
     Indication: DEPRESSION
     Dosage: 100 MG, 1X/DAY
     Route: 048
     Dates: start: 20090101, end: 20110501
  3. PRENATAL VITAMINS [Concomitant]
     Dosage: UNK

REACTIONS (9)
  - HEADACHE [None]
  - NAUSEA [None]
  - IRRITABILITY [None]
  - CONFUSIONAL STATE [None]
  - BALANCE DISORDER [None]
  - DISTURBANCE IN ATTENTION [None]
  - HYPERHIDROSIS [None]
  - DIZZINESS [None]
  - SALT CRAVING [None]
